FAERS Safety Report 7117318-4 (Version None)
Quarter: 2010Q4

REPORT INFORMATION
  Report Type: 
  Country: None (occurrence: None)
  Receive Date: 20101112
  Receipt Date: 20101101
  Transmission Date: 20110411
  Serious: Yes (Death)
  Sender: FDA-Public Use
  Company Number: 2010MA004102

PATIENT
  Age: 33 Year
  Sex: Male

DRUGS (7)
  1. OXYCODONE HCL [Suspect]
  2. DIAZEPAM [Suspect]
  3. NORDAZEPAM (NORDAZEPAM) [Suspect]
  4. TEMAZEPAM [Suspect]
  5. MORPHINE [Suspect]
  6. TETRAHYDROCANNABINOL (TETRAHYDROCANNABINOL) [Suspect]
  7. CON MEDA [Concomitant]

REACTIONS (6)
  - COMPLETED SUICIDE [None]
  - DEPRESSION [None]
  - DRUG TOXICITY [None]
  - OVERDOSE [None]
  - PARTNER STRESS [None]
  - SNORING [None]
